FAERS Safety Report 5018857-2 (Version None)
Quarter: 2006Q2

REPORT INFORMATION
  Report Type: 
  Country: None (occurrence: None)
  Receive Date: 20060606
  Receipt Date: 20051102
  Transmission Date: 20061013
  Serious: Yes (Hospitalization)
  Sender: FDA-Public Use
  Company Number: US-AMGEN-US149475

PATIENT
  Sex: Female
  Weight: 67.6 kg

DRUGS (18)
  1. NEULASTA [Suspect]
     Indication: CHEMOTHERAPY
     Route: 058
     Dates: start: 20050115, end: 20050326
  2. PAXIL [Concomitant]
     Dates: start: 20041207
  3. XANAX [Concomitant]
     Dates: start: 20041207
  4. LIPITOR [Concomitant]
     Dates: start: 20041207
  5. CALCIUM GLUCONATE [Concomitant]
     Dates: start: 20041207
  6. EMEND [Concomitant]
     Dates: start: 20050113, end: 20050324
  7. DECADRON SRC [Concomitant]
     Dates: start: 20050113, end: 20050615
  8. HYDRODIURIL [Concomitant]
     Dates: start: 20041207
  9. POTASSIUM [Concomitant]
     Dates: start: 20041207
  10. TYLENOL (CAPLET) [Concomitant]
     Dates: start: 20041207
  11. RANITIDINE [Concomitant]
     Dates: start: 20041207
  12. ALOXI [Concomitant]
     Dates: start: 20050113, end: 20050615
  13. TAXOTERE [Concomitant]
     Dates: start: 20050414, end: 20050616
  14. EPIRUBICIN HYDROCHLORIDE [Concomitant]
     Dates: start: 20050113, end: 20050224
  15. CYTOXAN [Concomitant]
     Dates: start: 20050113, end: 20050324
  16. FLUOROURACIL [Concomitant]
     Dates: start: 20050113, end: 20050224
  17. ADRIAMYCIN PFS [Concomitant]
     Dates: start: 20050324, end: 20050324
  18. ARANESP [Concomitant]
     Dates: start: 20050214, end: 20050630

REACTIONS (5)
  - CHEST PAIN [None]
  - DRUG INEFFECTIVE [None]
  - FEBRILE NEUTROPENIA [None]
  - NEUTROPENIA [None]
  - THERAPY NON-RESPONDER [None]
